FAERS Safety Report 16563563 (Version 2)
Quarter: 2019Q3

REPORT INFORMATION
  Report Type: Spontaneous
  Country: US (occurrence: US)
  Receive Date: 20190712
  Receipt Date: 20190905
  Transmission Date: 20191004
  Serious: Yes (Other)
  Sender: FDA-Public Use
  Company Number: US-ASTRAZENECA-2019SE98710

PATIENT
  Sex: Female
  Weight: 104.3 kg

DRUGS (60)
  1. NEXIUM [Suspect]
     Active Substance: ESOMEPRAZOLE MAGNESIUM
     Route: 048
     Dates: start: 20100912, end: 20160329
  2. CLONAZEPAM. [Concomitant]
     Active Substance: CLONAZEPAM
  3. DOXEPIN [Concomitant]
     Active Substance: DOXEPIN
  4. SYMBICORT [Concomitant]
     Active Substance: BUDESONIDE\FORMOTEROL FUMARATE DIHYDRATE
  5. ISORDIL [Concomitant]
     Active Substance: ISOSORBIDE DINITRATE
  6. ACETAMINOPHEN-CODEINE [Concomitant]
     Active Substance: ACETAMINOPHEN\CODEINE PHOSPHATE
  7. NEXIUM 24HR [Suspect]
     Active Substance: ESOMEPRAZOLE MAGNESIUM
     Route: 048
     Dates: start: 2008, end: 2016
  8. PRILOSEC OTC [Suspect]
     Active Substance: OMEPRAZOLE MAGNESIUM
     Route: 048
     Dates: start: 2008, end: 2016
  9. PREVACID [Suspect]
     Active Substance: LANSOPRAZOLE
     Route: 065
     Dates: start: 2008, end: 2016
  10. PREVACID 24 HR [Suspect]
     Active Substance: LANSOPRAZOLE
     Route: 065
     Dates: start: 2008, end: 2016
  11. ZANTAC [Concomitant]
     Active Substance: RANITIDINE HYDROCHLORIDE
  12. PROVENTIL [Concomitant]
     Active Substance: ALBUTEROL
  13. LISINOPRIL. [Concomitant]
     Active Substance: LISINOPRIL
  14. AZITHROMYCIN ANHYDROUS. [Concomitant]
     Active Substance: AZITHROMYCIN ANHYDROUS
  15. STROMECTOL [Concomitant]
     Active Substance: IVERMECTIN
  16. NEXIUM [Suspect]
     Active Substance: ESOMEPRAZOLE MAGNESIUM
     Route: 048
     Dates: start: 2010, end: 2016
  17. OMEPRAZOLE. [Suspect]
     Active Substance: OMEPRAZOLE
     Route: 065
     Dates: start: 2008, end: 2016
  18. TYLENOL [Concomitant]
     Active Substance: ACETAMINOPHEN
     Indication: PAIN
  19. PEPCID AC [Concomitant]
     Active Substance: FAMOTIDINE
  20. ZOLOFT [Concomitant]
     Active Substance: SERTRALINE HYDROCHLORIDE
  21. FOSAMAX [Concomitant]
     Active Substance: ALENDRONATE SODIUM
  22. GABAPENTIN. [Concomitant]
     Active Substance: GABAPENTIN
  23. LIPITOR [Concomitant]
     Active Substance: ATORVASTATIN CALCIUM
  24. LOVENOX [Concomitant]
     Active Substance: ENOXAPARIN SODIUM
  25. FLUTICASONE. [Concomitant]
     Active Substance: FLUTICASONE
  26. AMBIEN [Concomitant]
     Active Substance: ZOLPIDEM TARTRATE
  27. NEXIUM [Suspect]
     Active Substance: ESOMEPRAZOLE MAGNESIUM
     Dosage: GENERIC
     Route: 048
  28. OMEPRAZOLE. [Suspect]
     Active Substance: OMEPRAZOLE
     Route: 065
     Dates: start: 2008, end: 20160329
  29. PREDNISONE. [Concomitant]
     Active Substance: PREDNISONE
  30. BELLADONNA PHENOBARBITAL [Concomitant]
  31. OMEPRAZOLE. [Suspect]
     Active Substance: OMEPRAZOLE
     Route: 065
     Dates: start: 20140604, end: 20160329
  32. WELLBUTRIN [Concomitant]
     Active Substance: BUPROPION HYDROCHLORIDE
  33. SYNTHROID [Concomitant]
     Active Substance: LEVOTHYROXINE SODIUM
  34. COUMADIN [Concomitant]
     Active Substance: WARFARIN SODIUM
  35. BENZONATATE. [Concomitant]
     Active Substance: BENZONATATE
  36. CHERATUSSIN [Concomitant]
     Active Substance: AMMONIUM CHLORIDE\DEXTROMETHORPHAN\SODIUM CITRATE
  37. PROAIR HFA [Concomitant]
     Active Substance: ALBUTEROL SULFATE
  38. CYCLOBENZAPRINE. [Concomitant]
     Active Substance: CYCLOBENZAPRINE
  39. METOCLOPRAMIDE. [Concomitant]
     Active Substance: METOCLOPRAMIDE
  40. NEXIUM [Suspect]
     Active Substance: ESOMEPRAZOLE MAGNESIUM
     Route: 048
     Dates: start: 2008, end: 2016
  41. ALDACTONE [Concomitant]
     Active Substance: SPIRONOLACTONE
  42. MONTELUKAST [Concomitant]
     Active Substance: MONTELUKAST SODIUM
  43. LINDANE. [Concomitant]
     Active Substance: LINDANE
  44. CITALOPRAM [Concomitant]
     Active Substance: CITALOPRAM HYDROBROMIDE
  45. NITROFURANTOIN. [Concomitant]
     Active Substance: NITROFURANTOIN
  46. NORCO [Concomitant]
     Active Substance: ACETAMINOPHEN\HYDROCODONE BITARTRATE
  47. NITROSTAT [Concomitant]
     Active Substance: NITROGLYCERIN
  48. HYDRALAZINE [Concomitant]
     Active Substance: HYDRALAZINE HYDROCHLORIDE
  49. PERMETHRIN. [Concomitant]
     Active Substance: PERMETHRIN
  50. CYMBALTA [Concomitant]
     Active Substance: DULOXETINE HYDROCHLORIDE
  51. EFFEXOR [Concomitant]
     Active Substance: VENLAFAXINE HYDROCHLORIDE
  52. REMERON [Concomitant]
     Active Substance: MIRTAZAPINE
  53. VITAMIN B12 [Concomitant]
     Active Substance: CYANOCOBALAMIN
  54. DEMADEX [Concomitant]
     Active Substance: TORSEMIDE
  55. TIZANIDINE. [Concomitant]
     Active Substance: TIZANIDINE
  56. SULFAMETHOXAZOLE [Concomitant]
     Active Substance: SULFAMETHOXAZOLE
  57. TRIMETHOPRIM. [Concomitant]
     Active Substance: TRIMETHOPRIM
  58. NISOLDIPINE. [Concomitant]
     Active Substance: NISOLDIPINE
  59. AVELOX [Concomitant]
     Active Substance: MOXIFLOXACIN HYDROCHLORIDE
  60. DETROL [Concomitant]
     Active Substance: TOLTERODINE TARTRATE

REACTIONS (2)
  - Chronic kidney disease [Unknown]
  - Renal failure [Not Recovered/Not Resolved]
